FAERS Safety Report 8157928-9 (Version None)
Quarter: 2012Q1

REPORT INFORMATION
  Report Type: 
  Country: None (occurrence: None)
  Receive Date: 20120222
  Receipt Date: 20120214
  Transmission Date: 20120608
  Serious: Yes (Other)
  Sender: FDA-Public Use
  Company Number: PHEH2011US009896

PATIENT
  Sex: Female

DRUGS (6)
  1. EXELON [Suspect]
     Indication: COGNITIVE DISORDER
     Dosage: 4.6 MG/24 HRS
     Route: 062
     Dates: start: 20111019
  2. GLUCOSAMINE [Concomitant]
     Dosage: UNK UKN, UNK
  3. METOPROLOL TARTRATE [Concomitant]
     Indication: BLOOD PRESSURE
     Dosage: 25 MG
  4. SIMVASTATIN [Concomitant]
     Dosage: 10 MG
  5. LUTEIN [Concomitant]
     Dosage: UNK UKN, UNK
  6. MULTI-VITAMIN [Concomitant]
     Dosage: UNK UKN, UNK

REACTIONS (3)
  - APPLICATION SITE INFECTION [None]
  - APPLICATION SITE ERYTHEMA [None]
  - APPLICATION SITE PAIN [None]
